FAERS Safety Report 9268055 (Version 2)
Quarter: 2013Q2

REPORT INFORMATION
  Report Type: Spontaneous
  Country: DE (occurrence: DE)
  Receive Date: 20130502
  Receipt Date: 20130522
  Transmission Date: 20140414
  Serious: No
  Sender: FDA-Public Use
  Company Number: DE-B.I. PHARMACEUTICALS,INC./RIDGEFIELD-2013-DE-01240DE

PATIENT
  Age: 76 Year
  Sex: Female
  Weight: 80 kg

DRUGS (6)
  1. PRADAXA [Suspect]
     Indication: ATRIAL FIBRILLATION
     Dosage: 220 MG
     Route: 048
     Dates: start: 2012
  2. TORASEMID [Concomitant]
     Dosage: 5 MG
  3. IRBESARTAN [Concomitant]
     Dosage: 150 MG
  4. METOPROLOL RETARD [Concomitant]
     Dosage: 47.5 MG
  5. PANTOPRAZOL [Concomitant]
  6. LECARNIDIPIN [Concomitant]

REACTIONS (2)
  - No adverse event [Unknown]
  - Anxiety [Unknown]
